FAERS Safety Report 15724830 (Version 1)
Quarter: 2018Q4

REPORT INFORMATION
  Report Type: Report from Study
  Country: US (occurrence: US)
  Receive Date: 20181214
  Receipt Date: 20181214
  Transmission Date: 20190205
  Serious: Yes (Other)
  Sender: FDA-Public Use
  Company Number: US-SHIRE-US201848239

PATIENT
  Sex: Male

DRUGS (1)
  1. GATTEX [Suspect]
     Active Substance: TEDUGLUTIDE\WATER
     Indication: SHORT-BOWEL SYNDROME
     Dosage: 2 MG, 1X/DAY:QD
     Route: 058
     Dates: start: 20180829

REACTIONS (3)
  - Night sweats [Unknown]
  - Headache [Unknown]
  - Swelling face [Unknown]
